FAERS Safety Report 5825505-8 (Version None)
Quarter: 2008Q3

REPORT INFORMATION
  Report Type: 
  Country: None (occurrence: None)
  Receive Date: 20080723
  Receipt Date: 20080715
  Transmission Date: 20090109
  Serious: Yes (Death)
  Sender: FDA-Public Use
  Company Number: 163-21880-08070989

PATIENT
  Age: 86 Year
  Sex: Male

DRUGS (1)
  1. REVLIMID [Suspect]
     Indication: MYELODYSPLASTIC SYNDROME
     Dosage: 10 MG, 1 IN 1 D,ORAL
     Route: 048
     Dates: start: 20071120, end: 20071201

REACTIONS (4)
  - CONSTIPATION [None]
  - DEPRESSION [None]
  - FATIGUE [None]
  - SOMNOLENCE [None]
